FAERS Safety Report 4398607-3 (Version None)
Quarter: 2004Q3

REPORT INFORMATION
  Report Type: 
  Country: None (occurrence: None)
  Receive Date: 20040712
  Receipt Date: 20040629
  Transmission Date: 20050211
  Serious: Yes (Hospitalization, Disabling)
  Sender: FDA-Public Use
  Company Number: 8006626

PATIENT
  Age: 35 Year
  Sex: Female

DRUGS (4)
  1. KEPPRA [Suspect]
     Indication: EPILEPSY
     Dosage: 2250 MG /D PO
     Route: 048
     Dates: start: 20040401, end: 20040501
  2. TEGRETOL [Concomitant]
  3. GABAPENTIN [Concomitant]
  4. CLOBAZAM [Concomitant]

REACTIONS (3)
  - AFFECTIVE DISORDER [None]
  - CARCINOMA [None]
  - OBSESSIVE THOUGHTS [None]
